FAERS Safety Report 10128392 (Version 1)
Quarter: 2014Q2

REPORT INFORMATION
  Report Type: Spontaneous
  Country: US (occurrence: US)
  Receive Date: 20140428
  Receipt Date: 20140428
  Transmission Date: 20141212
  Serious: No
  Sender: FDA-Public Use
  Company Number: US-BIOGENIDEC-2014BI037201

PATIENT
  Sex: Female

DRUGS (7)
  1. TECFIDERA [Suspect]
     Indication: MULTIPLE SCLEROSIS
     Route: 048
     Dates: start: 201402
  2. ADVIL [Concomitant]
  3. CRESTOR [Concomitant]
  4. ECOTRIN [Concomitant]
  5. NEXIUM [Concomitant]
  6. NIACIN [Concomitant]
  7. VALSARTAN [Concomitant]

REACTIONS (2)
  - Influenza like illness [Unknown]
  - Nausea [Unknown]
